FAERS Safety Report 15254137 (Version 1)
Quarter: 2018Q3

REPORT INFORMATION
  Report Type: Spontaneous
  Country: US (occurrence: US)
  Receive Date: 20180717
  Receipt Date: 20180717
  Transmission Date: 20181010
  Serious: Yes (Death)
  Sender: FDA-Public Use
  Company Number: None

PATIENT
  Age: 59 Year
  Sex: Male

DRUGS (4)
  1. METOPROLOL TARTRATE 25MG [Concomitant]
     Active Substance: METOPROLOL TARTRATE
  2. BENAZEPRIL 40MG [Concomitant]
  3. TEMAZEPAM 15MG [Concomitant]
  4. TREMFYA [Suspect]
     Active Substance: GUSELKUMAB
     Indication: PSORIASIS
     Dosage: ?          OTHER FREQUENCY:EVERY OTHER MONTH;?
     Route: 058
     Dates: start: 20180201

REACTIONS (1)
  - Death [None]

NARRATIVE: CASE EVENT DATE: 20180713
